FAERS Safety Report 21228837 (Version 1)
Quarter: 2022Q3

REPORT INFORMATION
  Report Type: Spontaneous
  Country: US (occurrence: None)
  Receive Date: 20220818
  Receipt Date: 20220818
  Transmission Date: 20221027
  Serious: Yes (unspecified)
  Sender: FDA-Public Use
  Company Number: None

PATIENT
  Age: 85 Year
  Sex: Female
  Weight: 83.91 kg

DRUGS (22)
  1. DORZOLAMIDE HYDROCHLORIDE AND TIMOLOL MALEATE OPHTHALMIC SOLUTION [Suspect]
     Active Substance: DORZOLAMIDE HYDROCHLORIDE\TIMOLOL MALEATE
     Indication: Glaucoma
     Dosage: 1 DROP IN EACH EYE TWICE DAUILYU
  2. CITALOPRAM [Concomitant]
     Active Substance: CITALOPRAM HYDROBROMIDE
  3. LISINOPRIL [Concomitant]
     Active Substance: LISINOPRIL
  4. AZATHIOPRINE [Concomitant]
     Active Substance: AZATHIOPRINE
  5. LOVASTATIN [Concomitant]
     Active Substance: LOVASTATIN
  6. MELOXICAM [Concomitant]
     Active Substance: MELOXICAM
  7. FUROSEMIDE [Concomitant]
     Active Substance: FUROSEMIDE
  8. POTASSIUM CHLORIDE [Concomitant]
     Active Substance: POTASSIUM CHLORIDE
  9. TIMOLOL [Concomitant]
  10. LATANOPROST [Concomitant]
     Active Substance: LATANOPROST
  11. MEALTONIN [Concomitant]
  12. MINERALS\VITAMINS [Concomitant]
     Active Substance: MINERALS\VITAMINS
  13. CALCIUM CITRATE\VITAMIN D [Concomitant]
     Active Substance: CALCIUM CITRATE\VITAMIN D
  14. VITAMIN C [Concomitant]
     Active Substance: ASCORBIC ACID
  15. ACIDOPLHULUS [Concomitant]
  16. MULTIVITAMIN-MINERAL [Concomitant]
  17. OMEPRAZOLE [Concomitant]
     Active Substance: OMEPRAZOLE
  18. ASPIRIN [Concomitant]
     Active Substance: ASPIRIN
  19. VITAMIN D3 [Concomitant]
     Active Substance: CHOLECALCIFEROL
  20. APPLE CIDER VINEGAR [Concomitant]
     Active Substance: APPLE CIDER VINEGAR
  21. BENADRYL  25 MG [Concomitant]
  22. OMEGA Q PLUS [Concomitant]

REACTIONS (2)
  - Product substitution issue [None]
  - Epistaxis [None]

NARRATIVE: CASE EVENT DATE: 20220404
